FAERS Safety Report 15264134 (Version 2)
Quarter: 2018Q3

REPORT INFORMATION
  Report Type: Spontaneous
  Country: FR (occurrence: FR)
  Receive Date: 20180810
  Receipt Date: 20180810
  Transmission Date: 20181010
  Serious: Yes (Other)
  Sender: FDA-Public Use
  Company Number: FR-TEVA-2018-FR-937615

PATIENT
  Age: 60 Year
  Sex: Male

DRUGS (35)
  1. POTASSIUM [Concomitant]
     Active Substance: POTASSIUM
     Dosage: 4 MILLIGRAM DAILY;
     Route: 065
     Dates: start: 20170829
  2. FUROSEMIDE. [Concomitant]
     Active Substance: FUROSEMIDE
     Dosage: 60 MILLIGRAM DAILY; 60 MG, DAILY
     Route: 065
  3. FLUCONAZOLE. [Suspect]
     Active Substance: FLUCONAZOLE
     Indication: PRODUCT USED FOR UNKNOWN INDICATION
     Dosage: UNK
     Route: 065
     Dates: start: 20171102
  4. OXYCONTIN [Interacting]
     Active Substance: OXYCODONE HYDROCHLORIDE
     Dosage: 560 MILLIGRAM DAILY;
     Route: 065
  5. SERETIDE [Concomitant]
     Active Substance: FLUTICASONE PROPIONATE\SALMETEROL XINAFOATE
     Indication: ASTHMA
     Dosage: 3 DOSAGE FORMS DAILY; 3 DF, DAILY
     Route: 065
     Dates: start: 20170829
  6. ALFUZOSINE L.P. [Concomitant]
     Active Substance: ALFUZOSIN HYDROCHLORIDE
     Dosage: 10 MILLIGRAM DAILY; 10 MG, DAILY
     Route: 065
     Dates: start: 20170829
  7. METFORMINE [Concomitant]
     Active Substance: METFORMIN HYDROCHLORIDE
     Indication: DIABETES MELLITUS
     Dosage: 2000 MILLIGRAM DAILY; 1000 MG, BID
     Route: 065
     Dates: start: 20170829
  8. TEGRETOL [Concomitant]
     Active Substance: CARBAMAZEPINE
     Dosage: 400 MILLIGRAM DAILY;
     Route: 065
     Dates: start: 20170829
  9. FORSTEO [Concomitant]
     Active Substance: TERIPARATIDE
     Indication: OSTEOPOROSIS
     Dosage: 1 DOSAGE FORMS DAILY; 1 DF, MONTHLY
     Route: 065
     Dates: start: 201702
  10. OXYCONTIN [Interacting]
     Active Substance: OXYCODONE HYDROCHLORIDE
     Dosage: 2 DOSAGE FORMS DAILY; 2 DF, DAILY (40 MG STRENGTH)
     Route: 065
  11. DUPHALAC [Concomitant]
     Active Substance: LACTULOSE
     Dosage: UNK
     Route: 065
     Dates: start: 20171102
  12. FENOFIBRATE. [Concomitant]
     Active Substance: FENOFIBRATE
     Indication: BLOOD CHOLESTEROL
     Dosage: 300 MILLIGRAM DAILY; 300 MG, DAILY
     Route: 065
     Dates: start: 20170829
  13. DAFLON                             /00426001/ [Concomitant]
     Active Substance: DIOSMIN
     Dosage: 1500 MILLIGRAM DAILY; 500 MG, TID
     Route: 065
     Dates: start: 20170829
  14. AERIUS [Concomitant]
     Active Substance: DESLORATADINE
     Dosage: 10 MILLIGRAM DAILY; 5 MG, BID
     Route: 065
     Dates: start: 20170829
  15. PREVISCAN                          /00261401/ [Concomitant]
     Active Substance: PENTOXIFYLLINE
     Dosage: .5 DOSAGE FORMS DAILY;
     Route: 065
     Dates: start: 20170829
  16. OPTIJECT [Concomitant]
     Active Substance: IOVERSOL
     Indication: SCAN
     Dosage: 1 DF, SINGLE [ONLY ONCE]
     Route: 065
     Dates: start: 20171108
  17. FINASTERIDE. [Concomitant]
     Active Substance: FINASTERIDE
     Indication: PROSTATOMEGALY
     Dosage: 1 DOSAGE FORMS DAILY; 1 DF, DAILY
     Route: 065
     Dates: start: 20170829
  18. SPIRIVA [Concomitant]
     Active Substance: TIOTROPIUM BROMIDE MONOHYDRATE
     Indication: CHRONIC OBSTRUCTIVE PULMONARY DISEASE
     Dosage: 18 MCG, DAILY
     Route: 065
     Dates: start: 20170829
  19. METEOSPASMYL (ALVERINE CITRATE\DIMETHICONE) [Concomitant]
     Active Substance: ALVERINE CITRATE\DIMETHICONE
     Dosage: FOR 3 DAYS
     Route: 065
     Dates: start: 20171102
  20. IXEL                               /01054401/ [Concomitant]
     Active Substance: MILNACIPRAN HYDROCHLORIDE
     Indication: DEPRESSION
     Dosage: 100 MILLIGRAM DAILY; 50 MG, BID
     Route: 065
     Dates: start: 20170829
  21. LOVENOX [Concomitant]
     Active Substance: ENOXAPARIN SODIUM
     Dosage: 1 DOSAGE FORMS DAILY; 1 DF, DAILY
     Route: 065
     Dates: start: 20171108, end: 20171120
  22. BIRODOGYL [Concomitant]
     Active Substance: METRONIDAZOLE\SPIRAMYCIN
     Indication: TOOTH ABSCESS
     Dosage: 3 DOSAGE FORMS DAILY; UNK, TID
     Route: 048
     Dates: start: 20171024, end: 20171107
  23. CARBOLEVURE                        /00858201/ [Concomitant]
     Dosage: FROM 2 TO 3 DAYS
     Route: 065
     Dates: start: 20171102
  24. INEXIUM                            /01479302/ [Concomitant]
     Active Substance: ESOMEPRAZOLE MAGNESIUM
     Dosage: 40 MILLIGRAM DAILY; 40 MG, DAILY
     Route: 065
     Dates: start: 20170829
  25. OXYCONTIN [Interacting]
     Active Substance: OXYCODONE HYDROCHLORIDE
     Indication: PRODUCT USED FOR UNKNOWN INDICATION
     Route: 065
  26. VENTOLINE                          /00139501/ [Concomitant]
     Active Substance: ALBUTEROL
     Dosage: UNK
     Route: 065
     Dates: start: 20171102
  27. MORPHINE [Suspect]
     Active Substance: MORPHINE
     Indication: PRODUCT USED FOR UNKNOWN INDICATION
     Route: 042
  28. FUNGIZONE [Concomitant]
     Active Substance: AMPHOTERICIN B
     Dosage: 1 DOSAGE FORMS DAILY; 1 DF, DAILY
     Route: 065
     Dates: start: 20171102
  29. PROPRANOLOL [Concomitant]
     Active Substance: PROPRANOLOL HYDROCHLORIDE
     Dosage: 40 MILLIGRAM DAILY; 40 MG, DAILY
     Route: 065
     Dates: start: 20170829
  30. PERMIXON [Concomitant]
     Active Substance: HERBALS\SAW PALMETTO
     Indication: PROSTATOMEGALY
     Dosage: 160 MILLIGRAM DAILY; 160 MG, DAILY
     Route: 065
     Dates: start: 20170829
  31. CALCIUM [Concomitant]
     Active Substance: CALCIUM
     Dosage: 2 DOSAGE FORMS DAILY; 1 DF, BID
     Route: 065
     Dates: start: 20171102
  32. TANAKAN [Concomitant]
     Active Substance: GINKGO
     Dosage: 3 DOSAGE FORMS DAILY; 3 DF, DAILY
     Route: 065
     Dates: start: 20170829
  33. OXYCONTIN [Interacting]
     Active Substance: OXYCODONE HYDROCHLORIDE
     Dosage: 640 MILLIGRAM DAILY; 640 MG, DAILY (80 MG STRENGTH)
     Route: 065
     Dates: start: 2012
  34. OXYCONTIN [Interacting]
     Active Substance: OXYCODONE HYDROCHLORIDE
     Dosage: 6 DOSAGE FORMS DAILY;
     Route: 065
  35. GABAPENTINE [Concomitant]
     Active Substance: GABAPENTIN
     Dosage: 100 MG SX TIMES A DAY
     Route: 065
     Dates: start: 20170829

REACTIONS (5)
  - Drug dependence [Not Recovered/Not Resolved]
  - Drug interaction [Unknown]
  - Drug ineffective [Recovered/Resolved]
  - Drug abuse [Unknown]
  - Drug withdrawal syndrome [Unknown]

NARRATIVE: CASE EVENT DATE: 201711
